FAERS Safety Report 9519761 (Version 2)
Quarter: 2014Q1

REPORT INFORMATION
  Report Type: Spontaneous
  Country: US (occurrence: None)
  Receive Date: 20130305
  Receipt Date: 20140306
  Transmission Date: 20141002
  Serious: Yes (Other)
  Sender: FDA-Public Use
  Company Number: 163-21880-12113345

PATIENT
  Age: 57 Year
  Sex: Female
  Weight: 56.7 kg

DRUGS (9)
  1. REVLIMID [Suspect]
     Indication: PLASMA CELL MYELOMA
     Dosage: 5 MG, Q 72 HOURS, PO
     Route: 048
     Dates: start: 20111001
  2. VITAMIN B-12 (CYANOCOBALAMIN) (TABLETS) [Concomitant]
  3. COUMADIN (WARFARIN SODIUM) (TABLETS) [Concomitant]
  4. GABAPENTIN (GABAPENTIN) [Concomitant]
  5. HYDROCODONE/ACETAMINOPHEN (REMEDEINE) [Concomitant]
  6. LOMOTIL (LOMOTIL) (TABLETS) [Concomitant]
  7. PHOSLO (CALCIUM ACETATE) (CAPSULES) [Concomitant]
  8. PROCRIT (ERYTHROPOIETIN) [Concomitant]
  9. VITAMIN D (ERGOCALCIFEROL) [Concomitant]

REACTIONS (2)
  - Pulmonary embolism [None]
  - Gingival inflammation [None]
